FAERS Safety Report 7511192-X (Version None)
Quarter: 2011Q2

REPORT INFORMATION
  Report Type: 
  Country: None (occurrence: None)
  Receive Date: 20110531
  Receipt Date: 20110516
  Transmission Date: 20111010
  Serious: Yes (Hospitalization, Other)
  Sender: FDA-Public Use
  Company Number: PHHY2011US19380

PATIENT
  Sex: Female
  Weight: 72.562 kg

DRUGS (8)
  1. METFORMIN HCL [Concomitant]
     Indication: TYPE 2 DIABETES MELLITUS
     Dosage: 1 DF, QD
     Route: 048
  2. GLIPIZIDE [Concomitant]
     Indication: DIABETES MELLITUS
     Dosage: 1 DF, EVERY 12 HOURS
     Route: 048
  3. METOPROLOL TARTRATE [Concomitant]
     Indication: HYPERTENSION
     Dosage: 1 DF, EVERY 12 HOURS
     Route: 048
  4. DIOVAN [Concomitant]
  5. ACTOPLUS MET [Concomitant]
     Indication: TYPE 2 DIABETES MELLITUS
     Dosage: 1 DF, QD
     Route: 048
  6. NIFEDIPINE [Concomitant]
     Indication: HYPERTENSION
     Dosage: 1 DF, QD
     Route: 048
  7. PLAVIX [Concomitant]
     Dosage: 75 MG, UNK
     Route: 048
  8. TEKTURNA [Suspect]
     Indication: HYPERTENSION
     Dosage: 150 MG, UNK
     Route: 048
     Dates: start: 20090813, end: 20110310

REACTIONS (5)
  - SOMNOLENCE [None]
  - CEREBRAL INFARCTION [None]
  - HYPERGLYCAEMIA [None]
  - CONVULSION [None]
  - LEFT VENTRICULAR HYPERTROPHY [None]
